FAERS Safety Report 4590234-8 (Version None)
Quarter: 2005Q1

REPORT INFORMATION
  Report Type: 
  Country: None (occurrence: None)
  Receive Date: 20050224
  Receipt Date: 20050218
  Transmission Date: 20050727
  Serious: Yes (Life-Threatening)
  Sender: FDA-Public Use
  Company Number: US-809587413-K200500242

PATIENT
  Age: 93 Year
  Sex: Female

DRUGS (10)
  1. ALTACE [Suspect]
     Indication: MYOCARDIAL ISCHAEMIA
     Dosage: 10 MG, QD
     Route: 048
     Dates: start: 20030315, end: 20050126
  2. DICLOFENAC [Suspect]
     Indication: PAIN
     Dosage: 150 MG, QD
     Route: 048
     Dates: start: 20050121, end: 20050126
  3. MORPHINE [Concomitant]
     Indication: PAIN
     Dosage: 25 MG, UNK
     Route: 048
     Dates: end: 20050127
  4. AMITRIPTYLINE [Concomitant]
     Dosage: 20 MG, UNK
     Route: 048
  5. CO-DANTHRUSATE [Concomitant]
     Indication: CONSTIPATION
     Dosage: 1 TABLET EVERY EVENING
     Route: 048
  6. ASPIRIN [Concomitant]
     Indication: MYOCARDIAL ISCHAEMIA
     Dosage: 75 MG, UNK
     Route: 048
  7. ALENDRONATE SODIUM [Concomitant]
     Indication: OSTEOPOROSIS
     Dosage: 70 MG, UNK
     Route: 048
     Dates: end: 20050126
  8. FRUSEMIDE [Concomitant]
     Indication: MYOCARDIAL ISCHAEMIA
     Dosage: 40 MG, UNK
     Route: 048
     Dates: end: 20050126
  9. OMEPRAZOLE [Concomitant]
     Dosage: 20 MG, UNK
     Route: 048
     Dates: start: 20050121, end: 20050126
  10. MORPHINE [Concomitant]
     Route: 048
     Dates: end: 20050127

REACTIONS (4)
  - CONFUSIONAL STATE [None]
  - FALL [None]
  - RENAL FAILURE ACUTE [None]
  - THERAPEUTIC AGENT TOXICITY [None]
